FAERS Safety Report 12705459 (Version 1)
Quarter: 2016Q3

REPORT INFORMATION
  Report Type: Spontaneous
  Country: US (occurrence: US)
  Receive Date: 20160901
  Receipt Date: 20160901
  Transmission Date: 20161109
  Serious: No
  Sender: FDA-Public Use
  Company Number: US-BIOGEN-2016BI00283343

PATIENT
  Sex: Female

DRUGS (1)
  1. AVONEX [Suspect]
     Active Substance: INTERFERON BETA-1A
     Indication: MULTIPLE SCLEROSIS
     Route: 065
     Dates: start: 20051024, end: 20120615

REACTIONS (7)
  - Speech disorder [Not Recovered/Not Resolved]
  - Overdose [Recovered/Resolved]
  - Head injury [Recovered/Resolved]
  - Cardiac valve disease [Not Recovered/Not Resolved]
  - Weight decreased [Recovered/Resolved]
  - Gait disturbance [Not Recovered/Not Resolved]
  - Bleeding time prolonged [Not Recovered/Not Resolved]
